FAERS Safety Report 21912631 (Version 1)
Quarter: 2023Q1

REPORT INFORMATION
  Report Type: Spontaneous
  Country: US (occurrence: US)
  Receive Date: 20230125
  Receipt Date: 20230125
  Transmission Date: 20230418
  Serious: No
  Sender: FDA-Public Use
  Company Number: US-ALLERGAN-2236066US

PATIENT
  Age: 60 Year
  Sex: Female
  Weight: 46.259 kg

DRUGS (2)
  1. BOTOX [Suspect]
     Active Substance: ONABOTULINUMTOXINA
     Indication: Migraine without aura
     Dosage: UNK, SINGLE
     Dates: start: 20220908, end: 20220908
  2. BOTOX [Suspect]
     Active Substance: ONABOTULINUMTOXINA
     Indication: Pain

REACTIONS (1)
  - Off label use [Unknown]

NARRATIVE: CASE EVENT DATE: 20220908
